FAERS Safety Report 16995029 (Version 1)
Quarter: 2019Q4

REPORT INFORMATION
  Report Type: Report from Study
  Country: None (occurrence: US)
  Receive Date: 20191105
  Receipt Date: 20191105
  Transmission Date: 20200122
  Serious: Yes (Other)
  Sender: FDA-Public Use
  Company Number: US-ABBVIE-19K-163-2986283-00

PATIENT
  Sex: Female

DRUGS (2)
  1. HUMIRA [Suspect]
     Active Substance: ADALIMUMAB
     Indication: PSORIASIS
  2. HUMIRA [Suspect]
     Active Substance: ADALIMUMAB
     Indication: HIDRADENITIS
     Route: 058

REACTIONS (7)
  - Fungal infection [Unknown]
  - Bacterial infection [Unknown]
  - Abortion [Unknown]
  - Papilloma viral infection [Not Recovered/Not Resolved]
  - Maternal exposure during pregnancy [Unknown]
  - Vaginal infection [Not Recovered/Not Resolved]
  - Cervix carcinoma [Unknown]
